FAERS Safety Report 9277438 (Version 1)
Quarter: 2013Q2

REPORT INFORMATION
  Report Type: Spontaneous
  Country: NL (occurrence: NL)
  Receive Date: 20130508
  Receipt Date: 20130508
  Transmission Date: 20140414
  Serious: No
  Sender: FDA-Public Use
  Company Number: NL-BIOGENIDEC-2013BI031310

PATIENT
  Age: 44 Year
  Sex: Female

DRUGS (2)
  1. TYSABRI [Suspect]
     Indication: MULTIPLE SCLEROSIS
     Route: 042
     Dates: start: 20111222, end: 20121227
  2. FINGOLIMOD [Concomitant]
     Indication: MULTIPLE SCLEROSIS
     Dates: start: 201303

REACTIONS (1)
  - Multiple sclerosis relapse [Recovered/Resolved]
